FAERS Safety Report 5095711-1 (Version None)
Quarter: 2006Q3

REPORT INFORMATION
  Report Type: 
  Country: None (occurrence: None)
  Receive Date: 20060731
  Receipt Date: 20060417
  Transmission Date: 20061208
  Serious: No
  Sender: FDA-Public Use
  Company Number: 2006PV012146

PATIENT
  Age: 62 Year
  Sex: Female
  Weight: 110.6777 kg

DRUGS (17)
  1. BYETTA [Suspect]
     Indication: DIABETES MELLITUS NON-INSULIN-DEPENDENT
     Dosage: 10 MCG; BID; SC, SEE IMAGE
     Route: 058
     Dates: start: 20051025
  2. LANTUS [Concomitant]
  3. ACTOS [Concomitant]
  4. AMARYL [Concomitant]
  5. PRECOSE [Concomitant]
  6. DIOVAN [Concomitant]
  7. SPIRONOLACTONE [Concomitant]
  8. NEXIUM [Concomitant]
  9. ZYRTEC [Concomitant]
  10. LISINOPRIL [Concomitant]
  11. MULTIVITAMIN [Concomitant]
  12. CALCIUM GLUCONATE [Concomitant]
  13. ADVAIR DISKUS 100/50 [Concomitant]
  14. COMBIVENT [Concomitant]
  15. POTASSIUM [Concomitant]
  16. CYMBALTA [Concomitant]
  17. NOVAIR [Concomitant]

REACTIONS (7)
  - BLADDER CANCER [None]
  - BLOOD GLUCOSE FLUCTUATION [None]
  - DECREASED APPETITE [None]
  - EARLY SATIETY [None]
  - INJECTION SITE BRUISING [None]
  - NON-CARDIAC CHEST PAIN [None]
  - WEIGHT DECREASED [None]
